FAERS Safety Report 16571790 (Version 2)
Quarter: 2019Q3

REPORT INFORMATION
  Report Type: Spontaneous
  Country: US (occurrence: US)
  Receive Date: 20190715
  Receipt Date: 20190716
  Transmission Date: 20191004
  Serious: No
  Sender: FDA-Public Use
  Company Number: US-PFIZER INC-2019294251

PATIENT
  Age: 50 Year
  Sex: Male

DRUGS (1)
  1. CHANTIX [Suspect]
     Active Substance: VARENICLINE TARTRATE
     Dosage: UNK

REACTIONS (5)
  - Drug hypersensitivity [Unknown]
  - Heart rate increased [Unknown]
  - Cough [Unknown]
  - Abnormal dreams [Unknown]
  - Dyspnoea [Unknown]
